FAERS Safety Report 7921184-4 (Version None)
Quarter: 2011Q4

REPORT INFORMATION
  Report Type: 
  Country: None (occurrence: None)
  Receive Date: 20111117
  Receipt Date: 20111108
  Transmission Date: 20120403
  Serious: Yes (Hospitalization, Disabling)
  Sender: FDA-Public Use
  Company Number: FR-JNJFOC-20090101308

PATIENT
  Age: 45 Year
  Sex: Male

DRUGS (7)
  1. REMICADE [Suspect]
     Route: 042
     Dates: start: 20041213
  2. REMICADE [Suspect]
     Indication: PSORIATIC ARTHROPATHY
     Route: 042
     Dates: start: 20031113
  3. REMICADE [Suspect]
     Route: 042
     Dates: start: 20031226
  4. REMICADE [Suspect]
     Route: 042
     Dates: start: 20031123
  5. REMICADE [Suspect]
     Dosage: INFUSION DURATION WAS 1 HOUR INSTEAD OF THE USUAL 4 HOURS
     Route: 042
     Dates: start: 20041230
  6. METHOTREXATE [Concomitant]
     Indication: PSORIATIC ARTHROPATHY
  7. METHOTREXATE [Concomitant]
     Dates: end: 20020101

REACTIONS (7)
  - POLYNEUROPATHY [None]
  - HYPERSENSITIVITY [None]
  - ARTHRITIS [None]
  - DEMYELINATION [None]
  - BALANCE DISORDER [None]
  - PYREXIA [None]
  - INFUSION RELATED REACTION [None]
